FAERS Safety Report 5259272-6 (Version None)
Quarter: 2007Q1

REPORT INFORMATION
  Report Type: 
  Country: None (occurrence: None)
  Receive Date: 20070308
  Receipt Date: 20070305
  Transmission Date: 20070707
  Serious: Yes (Hospitalization)
  Sender: FDA-Public Use
  Company Number: FR-BOEHRINGER INGELHEIM PHARMACEUTICALS, INC.-2007-FF-00309FF

PATIENT
  Age: 36 Year
  Sex: Male

DRUGS (4)
  1. MICARDIS [Suspect]
     Indication: HYPERTENSION
     Route: 048
     Dates: start: 20061024, end: 20070118
  2. ASPEGIC 1000 [Concomitant]
     Dates: start: 20061024, end: 20070118
  3. AMLODIPINE [Concomitant]
     Dates: start: 20070116, end: 20070118
  4. EUPRESSYL [Concomitant]
     Dates: start: 20070116, end: 20070118

REACTIONS (2)
  - HYPOTENSION [None]
  - NEUTROPENIA [None]
